FAERS Safety Report 7183071-1 (Version None)
Quarter: 2010Q4

REPORT INFORMATION
  Report Type: 
  Country: None (occurrence: None)
  Receive Date: 20101222
  Receipt Date: 20100604
  Transmission Date: 20110411
  Serious: No
  Sender: FDA-Public Use
  Company Number: A0863067A

PATIENT
  Sex: Male

DRUGS (5)
  1. RYTHMOL [Suspect]
     Indication: VENTRICULAR ARRHYTHMIA
  2. GLUCOPHAGE [Concomitant]
  3. ZYRTEC [Concomitant]
  4. SOMA [Concomitant]
  5. NAPROSYN [Concomitant]

REACTIONS (1)
  - DRUG INEFFECTIVE [None]
